FAERS Safety Report 7877454-1 (Version None)
Quarter: 2011Q4

REPORT INFORMATION
  Report Type: 
  Country: None (occurrence: None)
  Receive Date: 20111031
  Receipt Date: 20111024
  Transmission Date: 20120403
  Serious: Yes (Other)
  Sender: FDA-Public Use
  Company Number: US-PFIZER INC-2011259047

PATIENT
  Sex: Female

DRUGS (5)
  1. SINGULAIR [Concomitant]
     Indication: HYPERTENSION
     Dosage: 10 MG, 1X/DAY
  2. ACETYLSALICYLIC ACID [Concomitant]
     Indication: CARDIAC DISORDER
     Dosage: 81 MG, UNK
  3. LISINOPRIL [Concomitant]
     Indication: HYPERTENSION
     Dosage: 40 MG, 1X/DAY
  4. AMLODIPINE [Concomitant]
     Indication: HYPERTENSION
     Dosage: 5 MG, 1X/DAY
  5. TOVIAZ [Suspect]
     Indication: HYPERTONIC BLADDER
     Dosage: 8 MG, UNK
     Dates: start: 20110301, end: 20110101

REACTIONS (5)
  - FATIGUE [None]
  - DRUG INEFFECTIVE [None]
  - BLADDER OPERATION [None]
  - PAIN IN EXTREMITY [None]
  - URINARY HESITATION [None]
